FAERS Safety Report 5429015-1 (Version None)
Quarter: 2007Q3

REPORT INFORMATION
  Report Type: 
  Country: None (occurrence: None)
  Receive Date: 20070829
  Receipt Date: 20061030
  Transmission Date: 20080115
  Serious: No
  Sender: FDA-Public Use
  Company Number: A0622289A

PATIENT
  Age: 23 Year
  Sex: Female

DRUGS (2)
  1. MALARONE [Suspect]
     Indication: MALARIA
     Route: 048
     Dates: start: 20060604, end: 20060707
  2. ERYTHROMYCIN [Concomitant]

REACTIONS (5)
  - ALOPECIA [None]
  - INFECTION [None]
  - MENSTRUATION IRREGULAR [None]
  - METRORRHAGIA [None]
  - NASOPHARYNGITIS [None]
